FAERS Safety Report 4687727-1 (Version None)
Quarter: 2005Q2

REPORT INFORMATION
  Report Type: 
  Country: None (occurrence: None)
  Receive Date: 20050610
  Receipt Date: 20050428
  Transmission Date: 20051028
  Serious: Yes (Life-Threatening, Hospitalization, Disabling)
  Sender: FDA-Public Use
  Company Number: US-MERCK-0504USA05050

PATIENT
  Age: 55 Year
  Sex: Female
  Weight: 91 kg

DRUGS (5)
  1. ZOCOR [Suspect]
     Indication: BLOOD CHOLESTEROL INCREASED
     Route: 048
     Dates: start: 19991201, end: 20041101
  2. ZOCOR [Suspect]
     Indication: HYPERLIPIDAEMIA
     Route: 048
     Dates: start: 19991201, end: 20041101
  3. SYNTHROID [Concomitant]
     Route: 048
  4. VASOTEC [Concomitant]
     Route: 048
  5. HYDRODIURIL [Concomitant]
     Route: 048

REACTIONS (2)
  - ADVERSE EVENT [None]
  - MYOSITIS [None]
